FAERS Safety Report 5312447-X (Version None)
Quarter: 2007Q2

REPORT INFORMATION
  Report Type: 
  Country: None (occurrence: None)
  Receive Date: 20070430
  Receipt Date: 20061116
  Transmission Date: 20071010
  Serious: No
  Sender: FDA-Public Use
  Company Number: 2006UW24686

PATIENT
  Age: 47 Year
  Sex: Female
  Weight: 53.1 kg

DRUGS (5)
  1. NEXIUM [Suspect]
     Indication: GASTROOESOPHAGEAL REFLUX DISEASE
     Route: 048
     Dates: end: 20060801
  2. NEXIUM [Suspect]
     Route: 048
     Dates: start: 20060801
  3. ZANTAC [Suspect]
     Route: 048
     Dates: end: 20060101
  4. NADOLOL [Concomitant]
  5. AMITRIPTYLINE HCL [Concomitant]

REACTIONS (7)
  - CHEST DISCOMFORT [None]
  - CHEST PAIN [None]
  - MIGRAINE [None]
  - NECK PAIN [None]
  - NEURALGIA [None]
  - PAIN IN EXTREMITY [None]
  - THERAPEUTIC RESPONSE DECREASED [None]
